FAERS Safety Report 17375886 (Version 2)
Quarter: 2020Q1

REPORT INFORMATION
  Report Type: Report from Study
  Country: CA (occurrence: CA)
  Receive Date: 20200206
  Receipt Date: 20200225
  Transmission Date: 20200409
  Serious: Yes (Other)
  Sender: FDA-Public Use
  Company Number: CA-JNJFOC-20200145218

PATIENT
  Age: 72 Year
  Sex: Male
  Weight: 87.4 kg

DRUGS (2)
  1. STELARA [Suspect]
     Active Substance: USTEKINUMAB
     Indication: COLITIS
     Dosage: STRENGTH = 90 MG
     Route: 058
     Dates: start: 20191010
  2. STELARA [Suspect]
     Active Substance: USTEKINUMAB
     Indication: PSORIASIS

REACTIONS (3)
  - Psoriasis [Unknown]
  - Therapeutic product effect decreased [Unknown]
  - Cellulitis [Unknown]

NARRATIVE: CASE EVENT DATE: 20200125
